FAERS Safety Report 8264648-9 (Version None)
Quarter: 2012Q2

REPORT INFORMATION
  Report Type: 
  Country: None (occurrence: None)
  Receive Date: 20120403
  Receipt Date: 20120319
  Transmission Date: 20120825
  Serious: Yes (Other)
  Sender: FDA-Public Use
  Company Number: 2012MA003630

PATIENT
  Age: 23 Year
  Sex: Female

DRUGS (2)
  1. PROPYLTHIOURACIL [Suspect]
     Indication: TOXIC NODULAR GOITRE
  2. PROPYLTHIOURACIL [Suspect]
     Indication: HYPERTHYROIDISM

REACTIONS (8)
  - TACHYCARDIA [None]
  - ANXIETY [None]
  - MATERNAL EXPOSURE DURING PREGNANCY [None]
  - AFFECT LABILITY [None]
  - DYSKINESIA [None]
  - CHOREA [None]
  - SPEECH DISORDER [None]
  - WEIGHT DECREASED [None]
